FAERS Safety Report 9213637 (Version 1)
Quarter: 2013Q2

REPORT INFORMATION
  Report Type: Report from Study
  Country: CN (occurrence: CN)
  Receive Date: 20130405
  Receipt Date: 20130405
  Transmission Date: 20140414
  Serious: Yes (Other)
  Sender: FDA-Public Use
  Company Number: CN-ASTELLAS-2013US003584

PATIENT
  Sex: 0

DRUGS (9)
  1. ERLOTINIB TABLET [Suspect]
     Indication: PANCREATIC CARCINOMA
     Dosage: UNK
     Route: 048
  2. NIMOTUZUMAB [Suspect]
     Indication: PANCREATIC CARCINOMA
     Dosage: 200 MG, WEEKLY
     Route: 041
  3. DOCETAXEL [Suspect]
     Indication: GASTROINTESTINAL NEOPLASM
     Dosage: UNK
     Route: 065
  4. CISPLATIN [Suspect]
     Indication: OESOPHAGEAL NEOPLASM
     Dosage: UNK
     Route: 065
  5. EPIRUBICIN HYDROCHLORIDE [Suspect]
     Indication: GASTRIC CANCER
     Dosage: UNK
     Route: 065
  6. CAPECITABINE [Suspect]
     Indication: GASTRIC CANCER
     Dosage: UNK
     Route: 048
  7. OXALIPLATIN [Suspect]
     Indication: GASTROINTESTINAL NEOPLASM
     Dosage: UNK
     Route: 065
  8. FLUOROURACIL [Suspect]
     Indication: OESOPHAGEAL NEOPLASM
     Dosage: UNK
     Route: 065
  9. GEMCITABINE HYDROCHLORIDE [Suspect]
     Indication: GASTRIC CANCER
     Dosage: UNK
     Route: 065

REACTIONS (1)
  - Bone marrow failure [Unknown]
